FAERS Safety Report 10034035 (Version 1)
Quarter: 2014Q1

REPORT INFORMATION
  Report Type: Spontaneous
  Country: GB (occurrence: None)
  Receive Date: 20140324
  Receipt Date: 20140324
  Transmission Date: 20141002
  Serious: Yes (Other)
  Sender: FDA-Public Use
  Company Number: None

PATIENT
  Age: 38 Year
  Sex: Female
  Weight: 54 kg

DRUGS (1)
  1. MIRENA IUD [Suspect]

REACTIONS (13)
  - Arthralgia [None]
  - Acne [None]
  - Headache [None]
  - Dizziness [None]
  - Nausea [None]
  - Anxiety [None]
  - Panic attack [None]
  - Depressed mood [None]
  - Suicidal ideation [None]
  - Alopecia [None]
  - Pelvic pain [None]
  - Memory impairment [None]
  - Disturbance in attention [None]
